FAERS Safety Report 4307294-1 (Version None)
Quarter: 2004Q1

REPORT INFORMATION
  Report Type: 
  Country: None (occurrence: None)
  Receive Date: 20040223
  Receipt Date: 20030220
  Transmission Date: 20041129
  Serious: Yes (Disabling)
  Sender: FDA-Public Use
  Company Number: WAES0302USA02323

PATIENT
  Age: 27 Year
  Sex: Male
  Weight: 82.1011 kg

DRUGS (1)
  1. TAB PROPECIA 1 MG. [Suspect]
     Indication: ALOPECIA
     Dosage: 1 MG/DAILY/PO
     Route: 048
     Dates: start: 20000201, end: 20010601

REACTIONS (1)
  - ERECTILE DYSFUNCTION [None]
